FAERS Safety Report 26124893 (Version 1)
Quarter: 2025Q4

REPORT INFORMATION
  Report Type: Spontaneous
  Country: US (occurrence: US)
  Receive Date: 20251205
  Receipt Date: 20251205
  Transmission Date: 20260118
  Serious: No
  Sender: SANOFI AVENTIS
  Company Number: US-SA-2025SA362717

PATIENT
  Age: 53 Year
  Sex: Female
  Weight: 128.64 kg

DRUGS (1)
  1. DUPIXENT [Suspect]
     Active Substance: DUPILUMAB
     Indication: Idiopathic urticaria
     Dosage: 300 MG, QOW
     Route: 058

REACTIONS (4)
  - Asthenia [Unknown]
  - Menopause [Unknown]
  - Cheilitis [Unknown]
  - Lip erythema [Unknown]

NARRATIVE: CASE EVENT DATE: 20251127
